FAERS Safety Report 5190278-1 (Version None)
Quarter: 2006Q4

REPORT INFORMATION
  Report Type: 
  Country: None (occurrence: None)
  Receive Date: 20061222
  Receipt Date: 20060911
  Transmission Date: 20070319
  Serious: No
  Sender: FDA-Public Use
  Company Number: US-AMGEN-US193015

PATIENT
  Sex: Male

DRUGS (5)
  1. ARANESP [Suspect]
     Indication: MYELODYSPLASTIC SYNDROME
     Route: 065
     Dates: start: 20030101
  2. ANTIHYPERTENSIVE MEDICATION NOS [Concomitant]
  3. FOLIC ACID [Concomitant]
  4. IRON [Concomitant]
  5. VITAMIN B-12 [Concomitant]

REACTIONS (1)
  - THERAPEUTIC RESPONSE DECREASED [None]
